FAERS Safety Report 15213198 (Version 4)
Quarter: 2018Q3

REPORT INFORMATION
  Report Type: Spontaneous
  Country: US (occurrence: US)
  Receive Date: 20180730
  Receipt Date: 20180831
  Transmission Date: 20181010
  Serious: No
  Sender: FDA-Public Use
  Company Number: US-PFIZER INC-2018301622

PATIENT
  Sex: Female

DRUGS (2)
  1. IBRANCE [Suspect]
     Active Substance: PALBOCICLIB
     Indication: BREAST CANCER METASTATIC
     Dosage: UNK, 1X/DAY (TAKING THE MEDICATION BETWEEN 7?8 PM)
  2. FASLODEX [Concomitant]
     Active Substance: FULVESTRANT
     Indication: BREAST CANCER METASTATIC
     Dosage: UNK

REACTIONS (5)
  - Product storage error [Unknown]
  - Mood altered [Unknown]
  - Abdominal pain upper [Unknown]
  - Constipation [Unknown]
  - Poor quality drug administered [Unknown]
